FAERS Safety Report 10439535 (Version 3)
Quarter: 2019Q1

REPORT INFORMATION
  Report Type: Report from Study
  Country: CN (occurrence: CN)
  Receive Date: 20140908
  Receipt Date: 20190206
  Transmission Date: 20190417
  Serious: Yes (Death, Congenital Anomaly)
  Sender: FDA-Public Use
  Company Number: PHHO2014CN010329

PATIENT

DRUGS (1)
  1. ICL670A [Suspect]
     Active Substance: DEFERASIROX
     Indication: THALASSAEMIA
     Dosage: DRUG EXPOSURE HAS OCCURRED VIA THE FATHER
     Route: 048

REACTIONS (1)
  - Exomphalos [Fatal]
